FAERS Safety Report 15721567 (Version 2)
Quarter: 2019Q1

REPORT INFORMATION
  Report Type: Spontaneous
  Country: FR (occurrence: FR)
  Receive Date: 20181214
  Receipt Date: 20190315
  Transmission Date: 20190417
  Serious: Yes (Hospitalization)
  Sender: FDA-Public Use
  Company Number: FR-ROCHE-2228993

PATIENT
  Age: 45 Year
  Sex: Female

DRUGS (8)
  1. ETOPOSIDE. [Suspect]
     Active Substance: ETOPOSIDE
     Indication: NON-HODGKIN^S LYMPHOMA STAGE III
     Dosage: FROM DAY -6 TO DAY -3
     Route: 065
  2. BENDAMUSTINE [Suspect]
     Active Substance: BENDAMUSTINE
     Route: 065
  3. ARACYTINE [Suspect]
     Active Substance: CYTARABINE
     Indication: NON-HODGKIN^S LYMPHOMA STAGE III
     Dosage: 1 G/SQM ON DAY -6 TO DAY -3
     Route: 065
  4. RITUXIMAB. [Suspect]
     Active Substance: RITUXIMAB
     Indication: NON-HODGKIN^S LYMPHOMA STAGE III
     Route: 065
  5. BENDAMUSTINE [Suspect]
     Active Substance: BENDAMUSTINE
     Indication: NON-HODGKIN^S LYMPHOMA STAGE III
     Dosage: (R-BENDAMUSTINE), ON DAY -7 AND DAY -6
     Route: 065
  6. MOZOBIL [Concomitant]
     Active Substance: PLERIXAFOR
     Indication: HAEMATOPOIETIC STEM CELL MOBILISATION
     Route: 065
  7. MELPHALAN. [Suspect]
     Active Substance: MELPHALAN
     Indication: NON-HODGKIN^S LYMPHOMA STAGE III
     Route: 065
  8. MOZOBIL [Concomitant]
     Active Substance: PLERIXAFOR
     Indication: PREMEDICATION

REACTIONS (13)
  - Ascites [Recovered/Resolved]
  - Haemorrhage [Unknown]
  - Toxicity to various agents [Recovered/Resolved]
  - Aplasia [Recovered/Resolved]
  - Renal failure [Not Recovered/Not Resolved]
  - Venoocclusive liver disease [Recovered/Resolved]
  - Generalised oedema [Recovered/Resolved]
  - Acute kidney injury [Recovered/Resolved]
  - Schistocytosis [Recovered/Resolved]
  - Renal tubular disorder [Unknown]
  - Pericardial effusion [Recovered/Resolved]
  - Thrombotic microangiopathy [Recovered/Resolved]
  - Red blood cell abnormality [Recovered/Resolved]
